FAERS Safety Report 8596992-X (Version None)
Quarter: 2012Q3

REPORT INFORMATION
  Report Type: 
  Country: None (occurrence: None)
  Receive Date: 20120815
  Receipt Date: 20120614
  Transmission Date: 20120928
  Serious: No
  Sender: FDA-Public Use
  Company Number: US-009507513-1208USA005038

PATIENT

DRUGS (3)
  1. CLARITIN [Concomitant]
     Indication: MEDICAL OBSERVATION
  2. CLARITIN [Concomitant]
     Indication: HYPERSENSITIVITY
     Dosage: UNK, UNKNOWN
     Route: 048
  3. MIRALAX [Suspect]
     Indication: PRODUCT USED FOR UNKNOWN INDICATION
     Dosage: UNK, QD
     Route: 048

REACTIONS (2)
  - DRUG ADMINISTERED TO PATIENT OF INAPPROPRIATE AGE [None]
  - INCORRECT DRUG ADMINISTRATION DURATION [None]
